FAERS Safety Report 6349267-3 (Version None)
Quarter: 2009Q3

REPORT INFORMATION
  Report Type: 
  Country: None (occurrence: None)
  Receive Date: 20090911
  Receipt Date: 20090901
  Transmission Date: 20100115
  Serious: Yes (Hospitalization)
  Sender: FDA-Public Use
  Company Number: A0805479A

PATIENT
  Age: 40 Year
  Sex: Female

DRUGS (8)
  1. AVANDIA [Suspect]
     Indication: DIABETES MELLITUS
     Dosage: 4MG PER DAY
     Route: 048
     Dates: start: 20040826
  2. ALPRAZOLAM [Concomitant]
  3. WELLBUTRIN XL [Concomitant]
  4. LISINOPRIL [Concomitant]
  5. VYTORIN [Concomitant]
  6. NEXIUM [Concomitant]
  7. ZELNORM [Concomitant]
  8. NORVASC [Concomitant]

REACTIONS (1)
  - MYOCARDIAL INFARCTION [None]
